FAERS Safety Report 13214267 (Version 1)
Quarter: 2017Q1

REPORT INFORMATION
  Report Type: Spontaneous
  Country: CA (occurrence: CA)
  Receive Date: 20170210
  Receipt Date: 20170210
  Transmission Date: 20170428
  Serious: Yes (Other)
  Sender: FDA-Public Use
  Company Number: CA-CELLTRION INC.-2016CA013937

PATIENT

DRUGS (4)
  1. INFLECTRA [Suspect]
     Active Substance: INFLIXIMAB-DYYB
     Indication: CROHN^S DISEASE
     Dosage: 300 MG, CYCLIC
     Route: 042
     Dates: start: 20160902
  2. METHOTREXATE SODIUM. [Suspect]
     Active Substance: METHOTREXATE SODIUM
     Indication: PRODUCT USED FOR UNKNOWN INDICATION
     Dosage: 12.5 MG, WEEKLY
     Route: 048
     Dates: start: 201605
  3. PREDNISONE. [Concomitant]
     Active Substance: PREDNISONE
  4. FOLIC ACID. [Concomitant]
     Active Substance: FOLIC ACID
     Dosage: 1 MG, CYCLIC, 6DAYS PER WEEK

REACTIONS (15)
  - Crohn^s disease [None]
  - Drug ineffective [Unknown]
  - Abdominal pain lower [Unknown]
  - Nausea [Unknown]
  - Malaise [Unknown]
  - Hypochromasia [Unknown]
  - Nasopharyngitis [Recovered/Resolved]
  - Abdominal pain upper [Unknown]
  - Weight fluctuation [Unknown]
  - Microcytosis [Unknown]
  - Abdominal distension [Unknown]
  - Drug intolerance [Unknown]
  - Asthenia [Unknown]
  - Iron deficiency [Unknown]
  - Drug hypersensitivity [Unknown]

NARRATIVE: CASE EVENT DATE: 201610
